FAERS Safety Report 9327522 (Version 1)
Quarter: 2013Q2

REPORT INFORMATION
  Report Type: Spontaneous
  Country: US (occurrence: US)
  Receive Date: 20130604
  Receipt Date: 20130604
  Transmission Date: 20140414
  Serious: No
  Sender: FDA-Public Use
  Company Number: US-PFIZER INC-2013169311

PATIENT
  Age: 67 Year
  Sex: Male
  Weight: 71.66 kg

DRUGS (1)
  1. GABAPENTIN [Suspect]
     Dosage: UNK

REACTIONS (3)
  - Malaise [Unknown]
  - Local swelling [Unknown]
  - Somnolence [Unknown]
